FAERS Safety Report 16899540 (Version 2)
Quarter: 2019Q4

REPORT INFORMATION
  Report Type: Spontaneous
  Country: US (occurrence: US)
  Receive Date: 20191009
  Receipt Date: 20191011
  Transmission Date: 20200122
  Serious: Yes (Disabling, Other)
  Sender: FDA-Public Use
  Company Number: US-REGENERON PHARMACEUTICALS, INC.-2019-56625

PATIENT

DRUGS (1)
  1. EYLEA [Suspect]
     Active Substance: AFLIBERCEPT
     Indication: DIABETES MELLITUS
     Dosage: 6-8 WEEKS, OU
     Route: 031

REACTIONS (4)
  - Cellulitis [Unknown]
  - Toe amputation [Unknown]
  - Off label use [Unknown]
  - Osteomyelitis [Unknown]
